FAERS Safety Report 26176795 (Version 1)
Quarter: 2025Q4

REPORT INFORMATION
  Report Type: Spontaneous
  Country: JP (occurrence: JP)
  Receive Date: 20251218
  Receipt Date: 20251218
  Transmission Date: 20260117
  Serious: Yes (Hospitalization, Other)
  Sender: ASTELLAS
  Company Number: JP-ASTELLAS-2025-AER-069662

PATIENT
  Age: 75 Year
  Sex: Male

DRUGS (6)
  1. ENFORTUMAB VEDOTIN [Suspect]
     Active Substance: ENFORTUMAB VEDOTIN
     Indication: Ureteric cancer
     Dosage: 1.25 [UNIT UNKNOWN]
     Route: 065
     Dates: start: 20250610
  2. ENFORTUMAB VEDOTIN [Suspect]
     Active Substance: ENFORTUMAB VEDOTIN
     Dosage: 1.25 [UNIT UNKNOWN]
     Route: 065
     Dates: start: 20250702
  3. ENFORTUMAB VEDOTIN [Suspect]
     Active Substance: ENFORTUMAB VEDOTIN
     Dosage: 1.25 [UNIT UNKNOWN]
     Route: 065
     Dates: start: 20250723
  4. PEMBROLIZUMAB [Concomitant]
     Active Substance: PEMBROLIZUMAB
     Indication: Ureteric cancer
     Dosage: 200 [UNIT UNKNOWN]
     Route: 065
     Dates: start: 20250702
  5. PEMBROLIZUMAB [Concomitant]
     Active Substance: PEMBROLIZUMAB
     Dosage: 200 [UNIT UNKNOWN]
     Route: 065
     Dates: start: 20250723
  6. PEMBROLIZUMAB [Concomitant]
     Active Substance: PEMBROLIZUMAB
     Dosage: 200 [UNIT UNKNOWN]
     Route: 065
     Dates: start: 20250610

REACTIONS (7)
  - Hypothyroidism [Unknown]
  - Hyperglycaemic hyperosmolar nonketotic syndrome [Unknown]
  - Type 1 diabetes mellitus [Unknown]
  - Paraganglion neoplasm [Unknown]
  - Zinc deficiency [Unknown]
  - Rash [Unknown]
  - Taste disorder [Unknown]

NARRATIVE: CASE EVENT DATE: 20250101
